FAERS Safety Report 5061694-3 (Version None)
Quarter: 2006Q3

REPORT INFORMATION
  Report Type: 
  Country: None (occurrence: None)
  Receive Date: 20060720
  Receipt Date: 20060711
  Transmission Date: 20061208
  Serious: Yes (Disabling)
  Sender: FDA-Public Use
  Company Number: 111508ISR

PATIENT
  Age: 57 Year
  Sex: Female

DRUGS (3)
  1. HYDROCORTISONE TAB [Suspect]
     Dates: start: 20060625
  2. INDAPAMIDE [Concomitant]
  3. PERINDOPRIL [Concomitant]

REACTIONS (3)
  - DEAFNESS [None]
  - EAR DISCOMFORT [None]
  - EAR INFECTION [None]
